FAERS Safety Report 4404469-8 (Version None)
Quarter: 2004Q3

REPORT INFORMATION
  Report Type: 
  Country: None (occurrence: None)
  Receive Date: 20040720
  Receipt Date: 20040708
  Transmission Date: 20050211
  Serious: Yes (Hospitalization)
  Sender: FDA-Public Use
  Company Number: S04-USA-04112-01

PATIENT
  Age: 90 Year
  Sex: Female

DRUGS (3)
  1. NAMENDA [Suspect]
     Indication: DEMENTIA ALZHEIMER'S TYPE
  2. ZOLOFT [Concomitant]
  3. ARICEPT [Concomitant]

REACTIONS (1)
  - SUICIDAL IDEATION [None]
